FAERS Safety Report 6899633-2 (Version None)
Quarter: 2010Q3

REPORT INFORMATION
  Report Type: 
  Country: None (occurrence: None)
  Receive Date: 20100803
  Receipt Date: 20100720
  Transmission Date: 20110219
  Serious: Yes (Other)
  Sender: FDA-Public Use
  Company Number: CN-RANBAXY-2010RR-36468

PATIENT
  Age: 68 Month
  Sex: Male

DRUGS (3)
  1. PHENOBARBITAL [Suspect]
     Indication: GRAND MAL CONVULSION
     Dosage: 25 MG/KG, UNK
  2. PHENYTOIN [Suspect]
     Indication: GRAND MAL CONVULSION
     Dosage: 25 MG/KG, UNK
  3. VALPROIC ACID [Concomitant]

REACTIONS (2)
  - EPILEPSY [None]
  - OVERDOSE [None]
